FAERS Safety Report 9320542 (Version 1)
Quarter: 2013Q2

REPORT INFORMATION
  Report Type: Report from Study
  Country: DE (occurrence: DE)
  Receive Date: 20130531
  Receipt Date: 20130531
  Transmission Date: 20140414
  Serious: Yes (Death, Hospitalization)
  Sender: FDA-Public Use
  Company Number: DE-ROCHE-736590

PATIENT
  Age: 84 Year
  Sex: Female
  Weight: 102 kg

DRUGS (5)
  1. CAPECITABINE [Suspect]
     Indication: COLON CANCER
     Dosage: LAST ADMINISTRATION PRIOR TO THE EVENT ON 13-OCT-2010
     Route: 048
  2. METFORMIN [Concomitant]
     Indication: DIABETES MELLITUS
     Route: 048
  3. LOPEDIUM [Concomitant]
     Indication: DIARRHOEA
     Route: 048
  4. LOPEDIUM [Concomitant]
     Indication: DIARRHOEA
     Route: 048
  5. ALLO-CT [Concomitant]
     Route: 048

REACTIONS (2)
  - Malignant neoplasm progression [Fatal]
  - Blood creatinine increased [Not Recovered/Not Resolved]
